FAERS Safety Report 5272052-0 (Version None)
Quarter: 2007Q1

REPORT INFORMATION
  Report Type: 
  Country: None (occurrence: None)
  Receive Date: 20061214
  Receipt Date: 20060912
  Transmission Date: 20070707
  Serious: Yes (Hospitalization, Other)
  Sender: FDA-Public Use
  Company Number: 2006034539

PATIENT
  Age: 53 Year
  Sex: Male

DRUGS (1)
  1. BEXTRA [Suspect]
     Indication: MUSCULOSKELETAL PAIN
     Dosage: (20 MG,WHEN NEEDED OR ONCE A DAY)
     Dates: start: 20030807, end: 20041020

REACTIONS (1)
  - PULMONARY EMBOLISM [None]
